FAERS Safety Report 7891322-0 (Version None)
Quarter: 2011Q4

REPORT INFORMATION
  Report Type: 
  Country: None (occurrence: None)
  Receive Date: 20111103
  Receipt Date: 20110802
  Transmission Date: 20120403
  Serious: No
  Sender: FDA-Public Use
  Company Number: US-AMGEN-USASP2011038964

PATIENT
  Age: 58 Year
  Sex: Female

DRUGS (7)
  1. AVAPRO [Concomitant]
  2. METHOTREXATE [Concomitant]
  3. FOLIC ACID [Concomitant]
  4. PRAVASTATIN [Concomitant]
  5. ENBREL [Suspect]
     Indication: PSORIATIC ARTHROPATHY
     Dosage: 50 MG, QWK
     Dates: start: 20110713
  6. ATIVAN [Concomitant]
  7. DILTIAZEM HCL [Concomitant]

REACTIONS (1)
  - INJECTION SITE PAIN [None]
